FAERS Safety Report 18098471 (Version 5)
Quarter: 2021Q4

REPORT INFORMATION
  Report Type: Spontaneous
  Country: US (occurrence: US)
  Receive Date: 20200731
  Receipt Date: 20211129
  Transmission Date: 20220303
  Serious: Yes (Other)
  Sender: FDA-Public Use
  Company Number: US-PFIZER INC-2019254719

PATIENT
  Age: 35 Year
  Sex: Male

DRUGS (3)
  1. DILANTIN [Suspect]
     Active Substance: PHENYTOIN
     Dosage: 200 MG (2 TABLETS), 2X/DAY
     Route: 048
  2. DILANTIN [Suspect]
     Active Substance: PHENYTOIN
     Dosage: 300 MG (3 TABLETS OF 100 MG), 2X/DAY
     Route: 048
  3. DILANTIN [Suspect]
     Active Substance: PHENYTOIN
     Dosage: 100 MG, 2X/DAY
     Route: 048

REACTIONS (2)
  - Epilepsy [Unknown]
  - Bipolar disorder [Unknown]
